FAERS Safety Report 21187884 (Version 1)
Quarter: 2022Q3

REPORT INFORMATION
  Report Type: Spontaneous
  Country: CA (occurrence: CA)
  Receive Date: 20220809
  Receipt Date: 20220809
  Transmission Date: 20221027
  Serious: Yes (Other)
  Sender: FDA-Public Use
  Company Number: CA-BAXTER-2022BAX016727

PATIENT
  Age: 32 Year
  Sex: Female

DRUGS (22)
  1. IFOSFAMIDE [Suspect]
     Active Substance: IFOSFAMIDE
     Indication: Angiocentric lymphoma
     Dosage: 1200.0 MG/M2, 1 EVERY 1 DAYS, DOSAGE FORM: INFUSION, INTRAVENOUS (NOT OTHERWISE SPECIFIED)
     Route: 042
  2. IFOSFAMIDE [Suspect]
     Active Substance: IFOSFAMIDE
     Dosage: DOSAGE FORM: INFUSION, INTRAVENOUS (NOT OTHERWISE SPECIFIED)
     Route: 042
  3. IFOSFAMIDE [Suspect]
     Active Substance: IFOSFAMIDE
     Dosage: INTRAVENOUS (NOT OTHERWISE SPECIFIED)
     Route: 042
  4. MESNA [Suspect]
     Active Substance: MESNA
     Indication: Angiocentric lymphoma
     Dosage: 480.0 MG/M2, 3 EVERY 1 DAYS, DOSAGE FORM: INFUSION, INTRAVENOUS (NOT OTHERWISE SPECIFIED)
     Route: 042
  5. MESNA [Suspect]
     Active Substance: MESNA
     Dosage: 330.0 MG/M2, 3 EVERY 1 DAYS, DOSAGE FORM: INFUSION, INTRAVENOUS (NOT OTHERWISE SPECIFIED)
     Route: 042
  6. MESNA [Suspect]
     Active Substance: MESNA
     Dosage: 300.0 MG/M2, 1 EVERY 1 DAYS, DOSAGE FORM: NOT SPECIFIED, INTRAVENOUS (NOT OTHERWISE SPECIFIED)
     Route: 042
  7. MESNA [Suspect]
     Active Substance: MESNA
     Dosage: 300.0 MG/M2, 1 EVERY 1 DAYS, DOSAGE FORM: INFUSION, INTRAVENOUS (NOT OTHERWISE SPECIFIED)
     Route: 042
  8. CISPLATIN [Suspect]
     Active Substance: CISPLATIN
     Indication: Angiocentric lymphoma
     Dosage: 33.0 MG/M2, INTRAVENOUS (NOT OTHERWISE SPECIFIED)
     Route: 042
  9. DEXAMETHASONE [Suspect]
     Active Substance: DEXAMETHASONE
     Indication: Angiocentric lymphoma
     Dosage: 40.0 MILLIGRAM, 1 EVERY 1 DAYS
     Route: 065
  10. DEXAMETHASONE [Suspect]
     Active Substance: DEXAMETHASONE
     Dosage: DOSAGE FORM: UNKNOWN
     Route: 065
  11. ETOPOSIDE [Suspect]
     Active Substance: ETOPOSIDE
     Indication: Angiocentric lymphoma
     Dosage: INTRAVENOUS (NOT OTHERWISE SPECIFIED)
     Route: 042
  12. ETOPOSIDE [Suspect]
     Active Substance: ETOPOSIDE
     Dosage: INTRAVENOUS (NOT OTHERWISE SPECIFIED)
     Route: 042
  13. GRANULOCYTE COLONY-STIMULATING FACTOR NOS [Suspect]
     Active Substance: GRANULOCYTE COLONY-STIMULATING FACTOR NOS
     Indication: Angiocentric lymphoma
     Dosage: UNK
     Route: 065
  14. GRANULOCYTE COLONY-STIMULATING FACTOR NOS [Suspect]
     Active Substance: GRANULOCYTE COLONY-STIMULATING FACTOR NOS
     Dosage: UNK
     Route: 065
  15. GRANULOCYTE COLONY-STIMULATING FACTOR NOS [Suspect]
     Active Substance: GRANULOCYTE COLONY-STIMULATING FACTOR NOS
     Dosage: DOSAGE FORM: UNKNOWN
     Route: 065
  16. ASPARAGINASE [Suspect]
     Active Substance: ASPARAGINASE
     Indication: Angiocentric lymphoma
     Dosage: UNK
     Route: 030
  17. LEUCOVORIN [Suspect]
     Active Substance: LEUCOVORIN
     Indication: Angiocentric lymphoma
     Dosage: 1500.0 MG/M2, 4 EVERY 1 DAYS, INTRAVENOUS (NOT OTHERWISE SPECIFIED)
     Route: 042
  18. METHOTREXATE SODIUM [Suspect]
     Active Substance: METHOTREXATE SODIUM
     Indication: Angiocentric lymphoma
     Dosage: UNK
     Route: 048
  19. DEXAMETHASONE [Suspect]
     Active Substance: DEXAMETHASONE
     Indication: Angiocentric lymphoma
     Dosage: DOSAGE FORM: NOT SPECIFIED
     Route: 065
  20. ETOPOSIDE [Suspect]
     Active Substance: ETOPOSIDE
     Indication: Angiocentric lymphoma
     Dosage: DOSAGE FORM: NOT SPECIFIED, INTRAVENOUS (NOT OTHERWISE SPECIFIED)
     Route: 042
  21. ASPARAGINASE [Suspect]
     Active Substance: ASPARAGINASE
     Indication: Angiocentric lymphoma
     Dosage: DOSAGE FORM: POWDER FOR SOLUTION INTRAMUSCULAR
     Route: 030
  22. LEUCOVORIN [Suspect]
     Active Substance: LEUCOVORIN
     Indication: Angiocentric lymphoma
     Dosage: 1500.0 MG/M2, 4 EVERY 1 DAYS, DOSAGE FORM: NOT SPECIFIED, INTRAVENOUS (NOT OTHERWISE SPECIFIED)
     Route: 042

REACTIONS (2)
  - Disease recurrence [Recovered/Resolved]
  - T-cell lymphoma refractory [Recovered/Resolved]
